FAERS Safety Report 5445935-6 (Version None)
Quarter: 2007Q3

REPORT INFORMATION
  Report Type: 
  Country: None (occurrence: None)
  Receive Date: 20070904
  Receipt Date: 20070820
  Transmission Date: 20080115
  Serious: No
  Sender: FDA-Public Use
  Company Number: VNL_00702_2007

PATIENT
  Sex: Female

DRUGS (15)
  1. APO-GO (APO-GO - APOMORPHINE HYDROCHLORIDE) (NO SPECIFIED) [Suspect]
     Indication: PARKINSON'S DISEASE
     Dosage: SEE IMAGE
     Route: 058
     Dates: start: 20060801, end: 20061001
  2. APO-GO (APO-GO - APOMORPHINE HYDROCHLORIDE) (NO SPECIFIED) [Suspect]
     Indication: PARKINSON'S DISEASE
     Dosage: SEE IMAGE
     Route: 058
     Dates: start: 20061001, end: 20070701
  3. APO-GO (APO-GO - APOMORPHINE HYDROCHLORIDE) (NO SPECIFIED) [Suspect]
     Indication: PARKINSON'S DISEASE
     Dosage: SEE IMAGE
     Route: 058
     Dates: start: 20070701
  4. STALEVO 100 [Suspect]
     Indication: PARKINSON'S DISEASE
     Dosage: (100 DF 5 TO 7 TIMES PER DAY), (150 DF 5X/DAY), (100 DF 5 TO 7 TIMES PER DAY
     Dates: start: 20060101, end: 20060501
  5. STALEVO 100 [Suspect]
     Indication: PARKINSON'S DISEASE
     Dosage: (100 DF 5 TO 7 TIMES PER DAY), (150 DF 5X/DAY), (100 DF 5 TO 7 TIMES PER DAY
     Dates: start: 20060501, end: 20060701
  6. STALEVO 100 [Suspect]
     Indication: PARKINSON'S DISEASE
     Dosage: (100 DF 5 TO 7 TIMES PER DAY), (150 DF 5X/DAY), (100 DF 5 TO 7 TIMES PER DAY
     Dates: start: 20070701
  7. ASPIRIN [Concomitant]
  8. CO-CODAMOL [Concomitant]
  9. DOMPERIDONE [Concomitant]
  10. AMITRIPTYLINE HCL [Concomitant]
  11. CITALOPRAM HYDROBROMIDE [Concomitant]
  12. SENNA /00142201/ [Concomitant]
  13. GABAPENTIN [Concomitant]
  14. ZOPLICONE [Concomitant]
  15. DICLOFENAC [Concomitant]

REACTIONS (4)
  - ANAEMIA OF CHRONIC DISEASE [None]
  - ANTINUCLEAR ANTIBODY POSITIVE [None]
  - HAPTOGLOBIN INCREASED [None]
  - RED BLOOD CELL SEDIMENTATION RATE INCREASED [None]
